FAERS Safety Report 11437431 (Version 1)
Quarter: 2015Q3

REPORT INFORMATION
  Report Type: Spontaneous
  Country: US (occurrence: US)
  Receive Date: 20150821
  Receipt Date: 20150821
  Transmission Date: 20151125
  Serious: No
  Sender: FDA-Public Use
  Company Number: US-ELI_LILLY_AND_COMPANY-US200704000277

PATIENT
  Sex: Female
  Weight: 56.24 kg

DRUGS (2)
  1. CYMBALTA [Suspect]
     Active Substance: DULOXETINE HYDROCHLORIDE
     Indication: IRRITABLE BOWEL SYNDROME
     Dosage: 60 MG, DAILY (1/D)
     Route: 048
     Dates: start: 2006
  2. CYMBALTA [Suspect]
     Active Substance: DULOXETINE HYDROCHLORIDE
     Dosage: 30 MG, DAILY (1/D)
     Route: 048

REACTIONS (5)
  - Headache [Unknown]
  - Sensory disturbance [Unknown]
  - Tremor [Unknown]
  - Withdrawal syndrome [Unknown]
  - Tinnitus [Not Recovered/Not Resolved]
